FAERS Safety Report 24162098 (Version 1)
Quarter: 2024Q3

REPORT INFORMATION
  Report Type: Report from Study
  Country: ES (occurrence: ES)
  Receive Date: 20240801
  Receipt Date: 20240801
  Transmission Date: 20241016
  Serious: Yes (Life-Threatening, Hospitalization)
  Sender: ACCORD
  Company Number: None

PATIENT
  Age: 57 Year
  Sex: Male

DRUGS (5)
  1. QUETIAPINE FUMARATE [Interacting]
     Active Substance: QUETIAPINE FUMARATE
     Indication: Intentional overdose
     Dates: start: 20240413, end: 20240413
  2. DIAZEPAM [Interacting]
     Active Substance: DIAZEPAM
     Indication: Intentional overdose
     Dates: start: 20240413, end: 20240413
  3. RIVOTRIL [Interacting]
     Active Substance: CLONAZEPAM
     Indication: Intentional overdose
     Dosage: 0.5 MG TABLETS
     Dates: start: 20240413, end: 20240413
  4. RIVOTRIL [Concomitant]
     Active Substance: CLONAZEPAM
     Indication: Depression
     Dates: start: 202307, end: 20240413
  5. DULOXETINE HYDROCHLORIDE [Concomitant]
     Active Substance: DULOXETINE HYDROCHLORIDE
     Indication: Depression
     Dosage: 60 MG GASTRO-RESISTANT HARD CAPSULES EFG
     Dates: start: 202401, end: 20240413

REACTIONS (1)
  - Depressed level of consciousness [Recovered/Resolved]

NARRATIVE: CASE EVENT DATE: 20240413
